FAERS Safety Report 6709803-1 (Version None)
Quarter: 2010Q2

REPORT INFORMATION
  Report Type: 
  Country: None (occurrence: None)
  Receive Date: 20100503
  Receipt Date: 20100503
  Transmission Date: 20101027
  Serious: Yes (Other)
  Sender: FDA-Public Use
  Company Number: None

PATIENT
  Age: 16 Month
  Sex: Male
  Weight: 10.4781 kg

DRUGS (1)
  1. TYLENOL (CAPLET) [Suspect]
     Indication: PYREXIA
     Dosage: 1.6ML 4-6HRS PO
     Route: 048
     Dates: start: 20100411, end: 20100422

REACTIONS (5)
  - DIARRHOEA [None]
  - PRODUCT QUALITY ISSUE [None]
  - PYREXIA [None]
  - VOMITING [None]
  - WEIGHT DECREASED [None]
